FAERS Safety Report 5021615-6 (Version None)
Quarter: 2006Q2

REPORT INFORMATION
  Report Type: 
  Country: None (occurrence: None)
  Receive Date: 20060605
  Receipt Date: 20060518
  Transmission Date: 20061013
  Serious: Yes (Death)
  Sender: FDA-Public Use
  Company Number: US200605004025

PATIENT
  Age: 91 Year
  Sex: Female

DRUGS (1)
  1. XIGRIS [Suspect]
     Indication: INTESTINAL ISCHAEMIA
     Dates: start: 20060501, end: 20060501

REACTIONS (1)
  - MALAISE [None]
